FAERS Safety Report 18078507 (Version 1)
Quarter: 2020Q3

REPORT INFORMATION
  Report Type: Spontaneous
  Country: US (occurrence: US)
  Receive Date: 20200727
  Receipt Date: 20200727
  Transmission Date: 20201103
  Serious: Yes (Hospitalization)
  Sender: FDA-Public Use
  Company Number: None

PATIENT
  Age: 89 Year
  Sex: Male
  Weight: 81.9 kg

DRUGS (23)
  1. LOSARTAN POTASSIUM. [Concomitant]
     Active Substance: LOSARTAN POTASSIUM
  2. ROSUVASTATIN CA [Concomitant]
     Active Substance: ROSUVASTATIN CALCIUM
  3. TYLENOL [Concomitant]
     Active Substance: ACETAMINOPHEN
  4. WARFARIN [Concomitant]
     Active Substance: WARFARIN
  5. TRIAMCINOLONE ACETONIDE. [Concomitant]
     Active Substance: TRIAMCINOLONE ACETONIDE
  6. TIMOLOL MAL EYE DROP [Concomitant]
  7. LORAZEPAM. [Concomitant]
     Active Substance: LORAZEPAM
  8. FAMOTIDINE. [Concomitant]
     Active Substance: FAMOTIDINE
  9. VITAMIN B12 [Concomitant]
     Active Substance: CYANOCOBALAMIN
  10. HERCEPTIN [Suspect]
     Active Substance: TRASTUZUMAB
     Indication: GASTRIC CANCER
  11. SUDAFED PE CONGESTION [Concomitant]
     Active Substance: PHENYLEPHRINE HYDROCHLORIDE
  12. SUDAFED [Concomitant]
     Active Substance: PSEUDOEPHEDRINE HYDROCHLORIDE
  13. MIRALAX [Concomitant]
     Active Substance: POLYETHYLENE GLYCOL 3350
  14. BENADRYL [Concomitant]
     Active Substance: DIPHENHYDRAMINE HYDROCHLORIDE
  15. LATANOPROST. [Concomitant]
     Active Substance: LATANOPROST
  16. ARTHRITIC PAIN [Concomitant]
     Active Substance: TROLAMINE SALICYLATE
  17. ASPIRIN 81MG [Concomitant]
     Active Substance: ASPIRIN
  18. IPRATROPIUM BROMIDE/ALBUTEROL [Concomitant]
     Active Substance: ALBUTEROL SULFATE\IPRATROPIUM BROMIDE
  19. LANSOPRAZOLE. [Concomitant]
     Active Substance: LANSOPRAZOLE
  20. NEBULIZER [Concomitant]
     Active Substance: DEVICE
  21. FUROSEMIDE. [Concomitant]
     Active Substance: FUROSEMIDE
  22. NITRO [Concomitant]
     Active Substance: NITROGLYCERIN
  23. ZOFRAN [Concomitant]
     Active Substance: ONDANSETRON HYDROCHLORIDE

REACTIONS (6)
  - Skin discolouration [None]
  - Internal haemorrhage [None]
  - Melaena [None]
  - Haemoptysis [None]
  - Blister [None]
  - Haematochezia [None]

NARRATIVE: CASE EVENT DATE: 20200724
